FAERS Safety Report 18366308 (Version 1)
Quarter: 2020Q4

REPORT INFORMATION
  Report Type: Spontaneous
  Country: GB (occurrence: GB)
  Receive Date: 20201009
  Receipt Date: 20201009
  Transmission Date: 20210114
  Serious: Yes (Other)
  Sender: FDA-Public Use
  Company Number: GB-SHIRE-GB202032223

PATIENT

DRUGS (3)
  1. HUMAN NORMAL IMMUNOGLOBULIN [Suspect]
     Active Substance: HUMAN IMMUNOGLOBULIN G
     Dosage: 130 GRAM, PER WEEK (6.94G/KG/MONTH)
     Route: 042
     Dates: start: 201311
  2. HUMAN NORMAL IMMUNOGLOBULIN [Suspect]
     Active Substance: HUMAN IMMUNOGLOBULIN G
     Indication: CHRONIC INFLAMMATORY DEMYELINATING POLYRADICULONEUROPATHY
     Dosage: 2 GRAM PER KILOGRAM, PER WEEK
     Route: 042
     Dates: start: 2007
  3. HUMAN NORMAL IMMUNOGLOBULIN [Suspect]
     Active Substance: HUMAN IMMUNOGLOBULIN G
     Dosage: 140- 150 GRAM PER WEEK
     Route: 042
     Dates: start: 2012

REACTIONS (2)
  - Therapeutic product effect incomplete [Unknown]
  - Intentional overdose [Unknown]
